FAERS Safety Report 11289032 (Version 1)
Quarter: 2015Q3

REPORT INFORMATION
  Report Type: Spontaneous
  Country: US (occurrence: US)
  Receive Date: 20150721
  Receipt Date: 20150721
  Transmission Date: 20151125
  Serious: No
  Sender: FDA-Public Use
  Company Number: US-UNITED THERAPEUTICS-UNT-2015-000277

PATIENT
  Age: 61 Year
  Sex: Female
  Weight: 70.3 kg

DRUGS (2)
  1. REVATIO [Concomitant]
     Active Substance: SILDENAFIL CITRATE
     Indication: PRODUCT USED FOR UNKNOWN INDICATION
  2. REMODULIN [Suspect]
     Active Substance: TREPROSTINIL
     Indication: PULMONARY HYPERTENSION
     Dosage: 0.091 ?G/KG/MIN, CONTINUING
     Route: 041
     Dates: start: 20050511

REACTIONS (5)
  - Nausea [Unknown]
  - Drug dose omission [Unknown]
  - Headache [Recovering/Resolving]
  - Fatigue [Unknown]
  - Device leakage [Unknown]

NARRATIVE: CASE EVENT DATE: 20150107
